FAERS Safety Report 22671074 (Version 2)
Quarter: 2024Q3

REPORT INFORMATION
  Report Type: Spontaneous
  Country: US (occurrence: US)
  Receive Date: 20230705
  Receipt Date: 20240702
  Transmission Date: 20241017
  Serious: No
  Sender: SAREPTA THERAPEUTICS
  Company Number: US-SAREPTA THERAPEUTICS INC.-SRP2022-002707

PATIENT
  Sex: Male

DRUGS (1)
  1. EXONDYS 51 [Suspect]
     Active Substance: ETEPLIRSEN
     Indication: Duchenne muscular dystrophy
     Dosage: 1200 MILLIGRAM WEEKLY
     Route: 042
     Dates: start: 201801, end: 20230125

REACTIONS (4)
  - Bone pain [Unknown]
  - Back pain [Unknown]
  - Fatigue [Unknown]
  - Drug ineffective [Unknown]
